FAERS Safety Report 9415652 (Version 2)
Quarter: 2013Q3

REPORT INFORMATION
  Report Type: Spontaneous
  Country: DK (occurrence: DK)
  Receive Date: 20130723
  Receipt Date: 20130814
  Transmission Date: 20140515
  Serious: Yes (Death, Hospitalization)
  Sender: FDA-Public Use
  Company Number: DK-WATSON-2013-12698

PATIENT
  Sex: Male

DRUGS (4)
  1. CIPROFLOXACIN HYDROCHLORIDE (UNKNOWN) [Suspect]
     Indication: INFECTION
     Dosage: 500 MG, BID FILM COATED TABLETS
     Route: 048
     Dates: start: 20130119
  2. DICILLIN [Suspect]
     Indication: INFECTION
     Dosage: 500 MG, TID
     Route: 048
     Dates: start: 20130119
  3. FENYTOIN [Suspect]
     Indication: PRODUCT USED FOR UNKNOWN INDICATION
     Dosage: UNK, UNKNOWN
     Route: 065
  4. ZINACEF /00454601/ [Suspect]
     Indication: INFECTION
     Dosage: UNK, UNKNOWN
     Route: 065

REACTIONS (1)
  - General physical health deterioration [Fatal]
